FAERS Safety Report 26009678 (Version 2)
Quarter: 2025Q4

REPORT INFORMATION
  Report Type: Spontaneous
  Country: JP (occurrence: JP)
  Receive Date: 20251107
  Receipt Date: 20251218
  Transmission Date: 20260117
  Serious: Yes (Other)
  Sender: ALEXION PHARMACEUTICALS
  Company Number: JP-ASTRAZENECA-202510JPN031628JP

PATIENT
  Age: 32 Year
  Sex: Female
  Weight: 104.2 kg

DRUGS (5)
  1. IMFINZI [Suspect]
     Active Substance: DURVALUMAB
     Indication: Endometrial cancer
     Dosage: 1120 MILLIGRAM, Q3W,5 DOSES
     Dates: start: 20250326
  2. IMFINZI [Suspect]
     Active Substance: DURVALUMAB
     Dosage: 1500 MILLIGRAM, Q4W,6 DOSES
  3. LYNPARZA [Suspect]
     Active Substance: OLAPARIB
     Indication: Endometrial cancer
     Dosage: UNK
     Route: 061
  4. PACLITAXEL [Concomitant]
     Active Substance: PACLITAXEL
     Dosage: 180 MILLIGRAM/SQ. METER
     Route: 065
  5. CARBOPLATIN [Concomitant]
     Active Substance: CARBOPLATIN
     Dosage: AUC 6
     Route: 065

REACTIONS (2)
  - Neutrophil count decreased [Unknown]
  - Urticaria [Unknown]
